FAERS Safety Report 13347736 (Version 1)
Quarter: 2017Q1

REPORT INFORMATION
  Report Type: Spontaneous
  Country: US (occurrence: US)
  Receive Date: 20170317
  Receipt Date: 20170317
  Transmission Date: 20170428
  Serious: Yes (Other)
  Sender: FDA-Public Use
  Company Number: US-BAUSCH-BL-2017-006912

PATIENT
  Age: 88 Year
  Sex: Female

DRUGS (2)
  1. DILTIAZEM. [Suspect]
     Active Substance: DILTIAZEM
     Indication: HEART RATE INCREASED
     Route: 065
  2. DILTIAZEM. [Suspect]
     Active Substance: DILTIAZEM
     Dosage: HIGHER DOSES OF DILTIAZEM
     Route: 065

REACTIONS (3)
  - Atrioventricular block complete [Not Recovered/Not Resolved]
  - Constipation [Unknown]
  - Nodal rhythm [Not Recovered/Not Resolved]
